FAERS Safety Report 6443848-4 (Version None)
Quarter: 2009Q4

REPORT INFORMATION
  Report Type: 
  Country: None (occurrence: None)
  Receive Date: 20091113
  Receipt Date: 20091029
  Transmission Date: 20100525
  Serious: Yes (Other)
  Sender: FDA-Public Use
  Company Number: 2009003306

PATIENT
  Age: 60 Year
  Sex: Male

DRUGS (2)
  1. TARCEVA [Suspect]
     Indication: NON-SMALL CELL LUNG CANCER
     Dosage: (150 MG,QD),ORAL
     Route: 048
     Dates: start: 20090901
  2. DEXAMETHASONE TAB [Concomitant]

REACTIONS (1)
  - THROMBOCYTOPENIA [None]
